FAERS Safety Report 6771219-X (Version None)
Quarter: 2010Q2

REPORT INFORMATION
  Report Type: 
  Country: None (occurrence: None)
  Receive Date: 20100616
  Receipt Date: 20100602
  Transmission Date: 20101027
  Serious: Yes (Other)
  Sender: FDA-Public Use
  Company Number: US-ASTRAZENECA-2009UW11031

PATIENT
  Age: 15305 Day
  Sex: Male
  Weight: 125.6 kg

DRUGS (8)
  1. SEROQUEL [Suspect]
     Route: 048
     Dates: start: 20040113
  2. SEROQUEL [Suspect]
     Dosage: TAKE TWO TABLETS BY MOUTH AT BED TIME
     Route: 048
     Dates: start: 20050707
  3. SEROQUEL [Suspect]
     Dosage: TAKE RWO TABLETS BY MOUTH AT BED TIME
     Route: 048
     Dates: start: 20060419
  4. EFFEXOR [Concomitant]
     Dates: start: 20040113
  5. LORAZEPAM [Concomitant]
     Dates: start: 20040113
  6. TRAZODONE HYDROCHLORIDE [Concomitant]
     Dates: start: 20040113
  7. TYLENOL W/ CODEINE NO. 3 [Concomitant]
     Dates: start: 20040113
  8. LIPITOR [Concomitant]
     Dates: start: 20040113

REACTIONS (8)
  - DIABETES MELLITUS [None]
  - DIABETES MELLITUS INADEQUATE CONTROL [None]
  - DIABETIC NEUROPATHY [None]
  - INSULIN-REQUIRING TYPE 2 DIABETES MELLITUS [None]
  - NEUROPATHY PERIPHERAL [None]
  - POLYNEUROPATHY [None]
  - TYPE 1 DIABETES MELLITUS [None]
  - TYPE 2 DIABETES MELLITUS [None]
